FAERS Safety Report 9830059 (Version 1)
Quarter: 2014Q1

REPORT INFORMATION
  Report Type: Spontaneous
  Country: US (occurrence: US)
  Receive Date: 20140120
  Receipt Date: 20140120
  Transmission Date: 20141002
  Serious: No
  Sender: FDA-Public Use
  Company Number: US-009507513-1401USA008369

PATIENT
  Age: 85 Year
  Sex: Female
  Weight: 57.14 kg

DRUGS (3)
  1. OXYTROL FOR WOMEN [Suspect]
     Indication: HYPERTONIC BLADDER
     Dosage: UNK, Q4D
     Route: 062
     Dates: start: 201310, end: 201311
  2. SIMVASTATIN [Concomitant]
     Indication: PRODUCT USED FOR UNKNOWN INDICATION
     Dosage: UNK, UNKNOWN
  3. SYNTHROID [Concomitant]
     Indication: PRODUCT USED FOR UNKNOWN INDICATION
     Dosage: UNK, UNKNOWN

REACTIONS (1)
  - Drug ineffective [Unknown]
